FAERS Safety Report 9434157 (Version 1)
Quarter: 2013Q3

REPORT INFORMATION
  Report Type: Spontaneous
  Country: US (occurrence: None)
  Receive Date: 20130730
  Receipt Date: 20130730
  Transmission Date: 20140515
  Serious: Yes (Other)
  Sender: FDA-Public Use
  Company Number: None

PATIENT
  Age: 44 Year
  Sex: Male
  Weight: 92.99 kg

DRUGS (2)
  1. ATORVASTATIN [Suspect]
  2. LEVOTHYROXINE [Suspect]

REACTIONS (11)
  - Dyspnoea [None]
  - Malaise [None]
  - Heart rate increased [None]
  - Drug ineffective [None]
  - Renal pain [None]
  - Hepatic pain [None]
  - Hypoaesthesia [None]
  - Muscle twitching [None]
  - Insomnia [None]
  - Headache [None]
  - Anger [None]
